FAERS Safety Report 10102978 (Version 2)
Quarter: 2014Q2

REPORT INFORMATION
  Report Type: Other
  Country: US (occurrence: US)
  Receive Date: 20140424
  Receipt Date: 20140609
  Transmission Date: 20141212
  Serious: Yes (Hospitalization, Other)
  Sender: FDA-Public Use
  Company Number: US-GSKPPD-2014GSK000169

PATIENT
  Age: 52 Year
  Sex: Female
  Weight: 131.66 kg

DRUGS (3)
  1. AVANDIA [Suspect]
     Indication: DIABETES MELLITUS
     Route: 048
     Dates: start: 20051208, end: 20060616
  2. LOVASTATIN [Concomitant]
  3. LASIX [Concomitant]

REACTIONS (2)
  - Myocardial infarction [Recovered/Resolved]
  - Stress cardiomyopathy [Recovered/Resolved]
